FAERS Safety Report 7955036-0 (Version None)
Quarter: 2011Q4

REPORT INFORMATION
  Report Type: 
  Country: None (occurrence: None)
  Receive Date: 20111202
  Receipt Date: 20111121
  Transmission Date: 20120403
  Serious: Yes (Hospitalization)
  Sender: FDA-Public Use
  Company Number: FR-PFIZER INC-2011259215

PATIENT
  Age: 71 Year
  Sex: Female
  Weight: 56 kg

DRUGS (5)
  1. CYTARABINE [Suspect]
     Indication: ACUTE MYELOID LEUKAEMIA
     Dosage: 315 MG, FROM DAY 1 TO DAY 7 OF EACH CYCLE
     Route: 041
     Dates: start: 20100224
  2. GEMTUZUMAB OZOGAMICIN [Suspect]
     Indication: ACUTE MYELOID LEUKAEMIA
     Dosage: 4.7MG ON DAY 1, 4 AND 7 OF EACH CYCLE
     Route: 041
     Dates: start: 20100224
  3. VALACYCLOVIR HYDROCHLORIDE [Concomitant]
     Dosage: UNK
     Dates: start: 20100226
  4. DAUNORUBICIN HCL [Suspect]
     Indication: ACUTE MYELOID LEUKAEMIA
     Dosage: 94 MG PER DAY FOR 3 DAYS OF EACH CYCLE
     Route: 041
     Dates: start: 20100224
  5. POSACONAZOLE [Concomitant]
     Dosage: UNK
     Dates: start: 20100223

REACTIONS (1)
  - PSEUDOMONAS INFECTION [None]
